FAERS Safety Report 23281291 (Version 1)
Quarter: 2023Q4

REPORT INFORMATION
  Report Type: Report from Study
  Country: US (occurrence: US)
  Receive Date: 20231211
  Receipt Date: 20231211
  Transmission Date: 20240109
  Serious: Yes (Death, Disabling, Other)
  Sender: FDA-Public Use
  Company Number: US-AMGEN-USASL2023209154

PATIENT
  Age: 53 Year
  Sex: Male

DRUGS (1)
  1. ENBREL [Suspect]
     Active Substance: ETANERCEPT
     Indication: Psoriatic arthropathy
     Dosage: 50 MILLIGRAM, QWK
     Route: 058
     Dates: start: 20230919, end: 20231119

REACTIONS (4)
  - Necrotising fasciitis [Fatal]
  - Cellulitis [Fatal]
  - Obesity [Fatal]
  - Wound sepsis [Fatal]

NARRATIVE: CASE EVENT DATE: 20230101
